FAERS Safety Report 14211668 (Version 3)
Quarter: 2017Q4

REPORT INFORMATION
  Report Type: Spontaneous
  Country: US (occurrence: US)
  Receive Date: 20171121
  Receipt Date: 20171204
  Transmission Date: 20180321
  Serious: Yes (Hospitalization, Other)
  Sender: FDA-Public Use
  Company Number: US-LEXICON PHARMACEUTICALS, INC-17-1606-01181

PATIENT
  Sex: Male
  Weight: 69.9 kg

DRUGS (32)
  1. ATROVENT [Concomitant]
     Active Substance: IPRATROPIUM BROMIDE
  2. MUPIROCIN. [Concomitant]
     Active Substance: MUPIROCIN
  3. LISINOPRIL. [Concomitant]
     Active Substance: LISINOPRIL
     Route: 048
  4. OCTREOTIDE. [Concomitant]
     Active Substance: OCTREOTIDE
     Route: 058
  5. OXYCODONE [Concomitant]
     Active Substance: OXYCODONE
     Route: 048
  6. DIAZEPAM. [Concomitant]
     Active Substance: DIAZEPAM
     Indication: ANXIETY
     Route: 048
  7. IBUPROFEN. [Concomitant]
     Active Substance: IBUPROFEN
     Route: 048
  8. ACETAMINOPHEN. [Concomitant]
     Active Substance: ACETAMINOPHEN
  9. ONDANSETRON [Concomitant]
     Active Substance: ONDANSETRON
     Route: 042
  10. THIAMINE. [Concomitant]
     Active Substance: THIAMINE
     Route: 048
  11. CHLORHEXIDINE [Concomitant]
     Active Substance: CHLORHEXIDINE
     Route: 048
  12. CREON [Concomitant]
     Active Substance: PANCRELIPASE AMYLASE\PANCRELIPASE LIPASE\PANCRELIPASE PROTEASE
     Dosage: 24000, 36000, 114000, 180000 UNIT CAPSULE, DELAYED RELEASE
  13. OXYCODONE [Concomitant]
     Active Substance: OXYCODONE
     Route: 048
  14. HUMALOG [Concomitant]
     Active Substance: INSULIN LISPRO
     Route: 058
  15. PANTOPRAZOLE [Concomitant]
     Active Substance: PANTOPRAZOLE
     Route: 048
  16. COLACE [Concomitant]
     Active Substance: DOCUSATE SODIUM
     Route: 048
  17. SENOKOT [Concomitant]
     Active Substance: SENNOSIDES
     Route: 048
  18. FUROSEMIDE. [Concomitant]
     Active Substance: FUROSEMIDE
     Route: 048
  19. FOLIC ACID. [Concomitant]
     Active Substance: FOLIC ACID
     Route: 048
  20. SIMETHICONE (DIMETHICONE) [Concomitant]
     Active Substance: DIMETHICONE
     Route: 048
  21. GLUCAGON. [Concomitant]
     Active Substance: GLUCAGON
     Route: 030
  22. NICODERM CQ [Concomitant]
     Active Substance: NICOTINE
     Route: 062
  23. PERCOCET [Concomitant]
     Active Substance: ACETAMINOPHEN\OXYCODONE HYDROCHLORIDE
     Route: 048
  24. TELOTRISTAT ETHYL [Suspect]
     Active Substance: TELOTRISTAT ETHYL
     Indication: CARCINOID SYNDROME
     Route: 048
     Dates: start: 20171024
  25. HUMALOG [Concomitant]
     Active Substance: INSULIN LISPRO
     Route: 058
  26. HEPARIN [Concomitant]
     Active Substance: HEPARIN SODIUM
     Route: 058
  27. DIPHEN/ATROP [Concomitant]
     Active Substance: ATROPINE SULFATE\DIPHENOXYLATE
  28. MAGNESIUM OXIDE. [Concomitant]
     Active Substance: MAGNESIUM OXIDE
     Route: 048
  29. OCTREOTIDE. [Concomitant]
     Active Substance: OCTREOTIDE
     Route: 017
  30. MIRALAX [Concomitant]
     Active Substance: POLYETHYLENE GLYCOL 3350
     Route: 048
  31. GLUTOSE [Concomitant]
     Active Substance: DEXTROSE
     Route: 048
  32. ASPIRIN. [Concomitant]
     Active Substance: ASPIRIN
     Route: 048

REACTIONS (6)
  - Tricuspid valve incompetence [Recovered/Resolved]
  - Dyspnoea exertional [Unknown]
  - Cardiac failure chronic [Unknown]
  - Oedema peripheral [Recovered/Resolved]
  - Palpitations [Unknown]
  - Dizziness [Unknown]

NARRATIVE: CASE EVENT DATE: 2017
